FAERS Safety Report 6584504-1 (Version None)
Quarter: 2010Q1

REPORT INFORMATION
  Report Type: 
  Country: None (occurrence: None)
  Receive Date: 20100217
  Receipt Date: 20100208
  Transmission Date: 20100710
  Serious: Yes (Hospitalization)
  Sender: FDA-Public Use
  Company Number: US-BIOGENIDEC-2010BI002841

PATIENT
  Age: 42 Year
  Sex: Male

DRUGS (1)
  1. TYSABRI [Suspect]
     Indication: MULTIPLE SCLEROSIS
     Route: 042
     Dates: start: 20070711

REACTIONS (9)
  - BURSITIS [None]
  - COUGH [None]
  - FATIGUE [None]
  - LOSS OF CONTROL OF LEGS [None]
  - MEMORY IMPAIRMENT [None]
  - PNEUMONIA [None]
  - PYREXIA [None]
  - RHINORRHOEA [None]
  - WEIGHT BEARING DIFFICULTY [None]
